FAERS Safety Report 13115258 (Version 1)
Quarter: 2017Q1

REPORT INFORMATION
  Report Type: Report from Study
  Country: US (occurrence: US)
  Receive Date: 20170113
  Receipt Date: 20170113
  Transmission Date: 20170428
  Serious: Yes (Hospitalization)
  Sender: FDA-Public Use
  Company Number: US-ACTELION-A-US2016-134413

PATIENT
  Age: 84 Year
  Sex: Male

DRUGS (3)
  1. UPTRAVI [Suspect]
     Active Substance: SELEXIPAG
     Indication: PULMONARY ARTERIAL HYPERTENSION
     Dosage: 600 MCG, BID
     Route: 048
     Dates: start: 20160308
  2. TRACLEER [Suspect]
     Active Substance: BOSENTAN
     Indication: PULMONARY ARTERIAL HYPERTENSION
     Dosage: 62.5 MG, BID
     Route: 048
     Dates: start: 20130318
  3. ADCIRCA [Concomitant]
     Active Substance: TADALAFIL

REACTIONS (14)
  - Rib fracture [Unknown]
  - Pain in jaw [Unknown]
  - Dry mouth [Unknown]
  - Headache [Unknown]
  - Arthralgia [Unknown]
  - Neck pain [Unknown]
  - Loss of consciousness [Unknown]
  - Syncope [Unknown]
  - Resuscitation [Unknown]
  - Dyspnoea exertional [Unknown]
  - Fall [Unknown]
  - Musculoskeletal pain [Unknown]
  - Nightmare [Unknown]
  - Diarrhoea [Unknown]

NARRATIVE: CASE EVENT DATE: 20160516
